FAERS Safety Report 7720653-X (Version None)
Quarter: 2011Q3

REPORT INFORMATION
  Report Type: 
  Country: None (occurrence: None)
  Receive Date: 20110831
  Receipt Date: 20110825
  Transmission Date: 20111222
  Serious: Yes (Other)
  Sender: FDA-Public Use
  Company Number: GB-NOVOPROD-331161

PATIENT
  Age: 53 Year
  Sex: Male
  Weight: 137.6 kg

DRUGS (7)
  1. LANTUS [Concomitant]
     Indication: PRODUCT USED FOR UNKNOWN INDICATION
  2. METFORMIN [Concomitant]
     Indication: PRODUCT USED FOR UNKNOWN INDICATION
     Dosage: 1 G, QD
  3. VICTOZA [Suspect]
     Indication: TYPE 2 DIABETES MELLITUS
     Dosage: UNK
     Dates: start: 20090916, end: 20110430
  4. FENOFIBRATE [Concomitant]
     Indication: PRODUCT USED FOR UNKNOWN INDICATION
     Dosage: 200 MG, QD
  5. MIXTARD HUMAN 70/30 [Suspect]
     Indication: TYPE 2 DIABETES MELLITUS
  6. NOVORAPID [Concomitant]
     Indication: PRODUCT USED FOR UNKNOWN INDICATION
  7. BISOPROLOL FUMARATE [Concomitant]
     Indication: PRODUCT USED FOR UNKNOWN INDICATION
     Dosage: 2.5 MG, QD

REACTIONS (1)
  - MYOCARDIAL INFARCTION [None]
